FAERS Safety Report 11194435 (Version 5)
Quarter: 2015Q4

REPORT INFORMATION
  Report Type: Spontaneous
  Country: CN (occurrence: CN)
  Receive Date: 20150616
  Receipt Date: 20151028
  Transmission Date: 20160304
  Serious: Yes (Other)
  Sender: FDA-Public Use
  Company Number: PHHY2015CN070285

PATIENT
  Age: 56 Year
  Sex: Male
  Weight: 70 kg

DRUGS (2)
  1. SEBIVO [Suspect]
     Active Substance: TELBIVUDINE
     Indication: HEPATITIS B E ANTIGEN POSITIVE
     Dosage: 600 MG, QD
     Route: 048
     Dates: start: 20121105, end: 20150530
  2. SEBIVO [Suspect]
     Active Substance: TELBIVUDINE
     Indication: HEPATIC CIRRHOSIS

REACTIONS (5)
  - Myalgia [Unknown]
  - Pain in extremity [Not Recovered/Not Resolved]
  - Blood creatine phosphokinase increased [Unknown]
  - Amyotrophy [Unknown]
  - Asthenia [Not Recovered/Not Resolved]

NARRATIVE: CASE EVENT DATE: 201412
